FAERS Safety Report 7518370-4 (Version None)
Quarter: 2011Q2

REPORT INFORMATION
  Report Type: 
  Country: None (occurrence: None)
  Receive Date: 20110602
  Receipt Date: 20110405
  Transmission Date: 20111010
  Serious: Yes (Hospitalization, Other)
  Sender: FDA-Public Use
  Company Number: US-BAYER-200838762NA

PATIENT
  Age: 59 Year
  Sex: Male
  Weight: 144 kg

DRUGS (32)
  1. TRASYLOL [Suspect]
     Indication: CORONARY ARTERY BYPASS
     Dosage: TEST DOSE 1ML, 200ML PRIME, LOADING DOSE 2 MILLION KIU, THEN DRIP OF SAME DOSAGE
     Route: 042
     Dates: start: 20060928, end: 20060928
  2. NOVOLOG [Concomitant]
     Dosage: UNK
     Route: 058
     Dates: start: 20040101
  3. REGULAR INSULIN [Concomitant]
     Dosage: SLIDING SCALE
     Route: 058
     Dates: start: 20060901
  4. VITAMIN K TAB [Concomitant]
     Dosage: UNK
     Route: 042
     Dates: start: 20060927
  5. CARDIZEM [Concomitant]
     Dosage: DRIP 15/HR
     Route: 042
     Dates: start: 20060924
  6. CARDIZEM [Concomitant]
     Dosage: 5-10 MG
     Route: 042
     Dates: start: 20060924
  7. IBUPROFEN [Concomitant]
     Route: 048
  8. TRASYLOL [Suspect]
     Indication: CARDIAC OPERATION
     Dosage: UNK
     Route: 042
     Dates: start: 20041223
  9. MILRINONE [Concomitant]
     Dosage: UNK
     Route: 042
     Dates: start: 20060928, end: 20060928
  10. VERAPAMIL [Concomitant]
     Dosage: UNK
     Route: 042
     Dates: start: 20060928, end: 20060928
  11. LISINOPRIL [Concomitant]
     Dosage: 40 MG, QD
     Route: 048
  12. METOPROLOL TARTRATE [Concomitant]
     Dosage: 50-100MG TWICE DAILY
     Dates: start: 20060924
  13. AMIODARONE HCL [Concomitant]
     Dosage: 400 MG, TID
     Route: 048
     Dates: start: 20060101, end: 20060401
  14. METOPROLOL TARTRATE [Concomitant]
     Dosage: 50 MG, BID
     Route: 048
     Dates: start: 20060101
  15. LANTUS [Concomitant]
     Dosage: 70 U, HS
     Route: 058
     Dates: start: 20040101
  16. NORVASC [Concomitant]
     Dosage: 10 MG, QD
  17. NITROGLYCERIN [Concomitant]
     Dosage: 33MCG/MIN
     Route: 042
     Dates: start: 20060928, end: 20060929
  18. FENTANYL [Concomitant]
     Dosage: UNK
     Route: 042
     Dates: start: 20060928, end: 20060928
  19. LASIX [Concomitant]
     Dosage: 20-40MG QD ORAL AND IV
  20. NITROGLYCERIN [Concomitant]
     Dosage: 20 MCG
     Route: 042
     Dates: start: 20060924
  21. WARFARIN SODIUM [Concomitant]
     Dosage: 7.5 MG, QD
     Route: 048
     Dates: start: 20060101
  22. LASIX [Concomitant]
  23. LOVENOX [Concomitant]
     Dosage: 140MG-145MG Q 12 HOURS
     Route: 058
     Dates: start: 20060924
  24. ACETYLSALICYLIC ACID SRT [Concomitant]
     Dosage: 325 MG, QD
     Route: 048
  25. AMIODARONE HCL [Concomitant]
     Dosage: 0.5MG/MIN
     Route: 042
     Dates: start: 20060928, end: 20061001
  26. HUMAN INSULIN [Concomitant]
     Dosage: UNK
     Route: 042
     Dates: start: 20060928, end: 20061002
  27. VASOPRESSIN [VASOPRESSIN] [Concomitant]
     Dosage: UNK
     Route: 042
     Dates: start: 20060928
  28. ALBUMIN (HUMAN) [Concomitant]
     Dosage: 5%/250ML
     Route: 042
     Dates: start: 20060928
  29. GLIPIZIDE [Concomitant]
     Dosage: 10 MG, QD
     Route: 048
  30. LIPITOR [Concomitant]
     Dosage: 80 MG, QD
     Route: 048
  31. LIPITOR [Concomitant]
     Dosage: 80 MG, HS
  32. DOPAMINE HCL [Concomitant]
     Dosage: 2MCG/KG/HR
     Route: 042
     Dates: start: 20060929

REACTIONS (12)
  - INFECTION [None]
  - INJURY [None]
  - UNEVALUABLE EVENT [None]
  - RENAL FAILURE [None]
  - PAIN [None]
  - STRESS [None]
  - RENAL INJURY [None]
  - ANXIETY [None]
  - ANHEDONIA [None]
  - FEAR [None]
  - RENAL IMPAIRMENT [None]
  - EMOTIONAL DISTRESS [None]
